FAERS Safety Report 6522349-9 (Version None)
Quarter: 2009Q4

REPORT INFORMATION
  Report Type: 
  Country: None (occurrence: None)
  Receive Date: 20091230
  Receipt Date: 20091218
  Transmission Date: 20100525
  Serious: Yes (Hospitalization)
  Sender: FDA-Public Use
  Company Number: B0622033A

PATIENT
  Age: 33 Year
  Sex: Male

DRUGS (10)
  1. LAMIVUDINE [Suspect]
  2. ENFUVIRTIDE [Suspect]
  3. TENOFOVIR [Suspect]
  4. ATAZANAVIR [Suspect]
  5. INDINIVIR SULFATE [Suspect]
  6. LOPINAVIR [Suspect]
  7. NELFINAVIR MESYLATE [Suspect]
  8. TIPRANAVIR [Suspect]
  9. RITONAVIR [Suspect]
  10. TENOFOVIR [Suspect]

REACTIONS (6)
  - ABDOMINAL PAIN [None]
  - APPENDICITIS [None]
  - DRUG RESISTANCE [None]
  - IMMUNE RECONSTITUTION SYNDROME [None]
  - LYMPHADENOPATHY [None]
  - VOMITING [None]
